FAERS Safety Report 10218684 (Version 2)
Quarter: 2014Q2

REPORT INFORMATION
  Report Type: Spontaneous
  Country: DE (occurrence: None)
  Receive Date: 20140603
  Receipt Date: 20140630
  Transmission Date: 20141212
  Serious: Yes (Hospitalization, Other)
  Sender: FDA-Public Use
  Company Number: 2014DE003053

PATIENT
  Age: 66 Year
  Sex: Male
  Weight: 92 kg

DRUGS (6)
  1. ICLUSIG (PONATINIB) TABLET [Suspect]
     Indication: ACUTE LYMPHOCYTIC LEUKAEMIA
     Route: 048
     Dates: start: 20131008, end: 20131111
  2. ICLUSIG (PONATINIB) TABLET [Suspect]
     Indication: CHROMOSOME ANALYSIS ABNORMAL
     Route: 048
     Dates: start: 20131008, end: 20131111
  3. AMLODIPIN (AMLODIPINE MESILATE) [Concomitant]
  4. RAMIPRIL (RAMIPRIL) [Concomitant]
  5. HCT (HYDROCHLOROTHIAZIDE) [Concomitant]
  6. STATIN (TIABENDAZOLE) [Concomitant]

REACTIONS (2)
  - Atrial fibrillation [None]
  - Heart rate increased [None]
